FAERS Safety Report 10622487 (Version 1)
Quarter: 2014Q4

REPORT INFORMATION
  Report Type: Spontaneous
  Country: US (occurrence: None)
  Receive Date: 20141202
  Receipt Date: 20141202
  Transmission Date: 20150529
  Serious: Yes (Hospitalization)
  Sender: FDA-Public Use
  Company Number: None

PATIENT
  Age: 79 Year
  Sex: Male
  Weight: 92 kg

DRUGS (1)
  1. NAPROXEN. [Suspect]
     Active Substance: NAPROXEN
     Indication: OSTEOARTHRITIS
     Dates: end: 20141102

REACTIONS (6)
  - Gastric haemorrhage [None]
  - Nausea [None]
  - Insomnia [None]
  - Constipation [None]
  - Abdominal distension [None]
  - Anaemia [None]

NARRATIVE: CASE EVENT DATE: 20141101
